FAERS Safety Report 15748255 (Version 1)
Quarter: 2018Q4

REPORT INFORMATION
  Report Type: Spontaneous
  Country: ES (occurrence: ES)
  Receive Date: 20181221
  Receipt Date: 20181221
  Transmission Date: 20190205
  Serious: Yes (Hospitalization)
  Sender: FDA-Public Use
  Company Number: ES-SUN PHARMACEUTICAL INDUSTRIES LTD-2018RR-194176

PATIENT
  Age: 31 Year
  Sex: Male

DRUGS (2)
  1. DICLOFENAC [Suspect]
     Active Substance: DICLOFENAC
     Indication: RENAL COLIC
     Dosage: 150 MILLIGRAM, BID
     Route: 048
     Dates: start: 20180312, end: 20180317
  2. NOLOTIL 575 MG CAPSULAS DURAS, 10 CAPSULAS [Concomitant]
     Indication: RENAL COLIC
     Dosage: 575 MILLIGRAM, BID
     Route: 048
     Dates: start: 20180312, end: 20180317

REACTIONS (1)
  - Enteritis [Recovered/Resolved]

NARRATIVE: CASE EVENT DATE: 20180315
